FAERS Safety Report 6716959-3 (Version None)
Quarter: 2010Q2

REPORT INFORMATION
  Report Type: 
  Country: None (occurrence: None)
  Receive Date: 20100505
  Receipt Date: 20100503
  Transmission Date: 20101027
  Serious: Yes (Death)
  Sender: FDA-Public Use
  Company Number: 1000013536

PATIENT

DRUGS (4)
  1. CITALOPRAM HYDROBROMIDE [Suspect]
     Dosage: 20 MG (20MG, 1 IN 1D) ORAL
     Route: 048
  2. BENADRYL [Concomitant]
  3. MARIJUANA [Concomitant]
  4. PROTEIN POWDER [Concomitant]

REACTIONS (1)
  - SUDDEN DEATH [None]
